FAERS Safety Report 12588851 (Version 1)
Quarter: 2016Q3

REPORT INFORMATION
  Report Type: Spontaneous
  Country: US (occurrence: US)
  Receive Date: 20160725
  Receipt Date: 20160725
  Transmission Date: 20161109
  Serious: No
  Sender: FDA-Public Use
  Company Number: US-JNJFOC-20160619277

PATIENT
  Age: 62 Year
  Sex: Male
  Weight: 49.9 kg

DRUGS (1)
  1. TYLENOL EXTRA STRENGTH [Suspect]
     Active Substance: ACETAMINOPHEN
     Indication: ARTHRALGIA
     Dosage: STARTED ABOUT A WEEK AGO, EVERY 4-6 HOURS
     Route: 048

REACTIONS (1)
  - Dyspepsia [Unknown]
